FAERS Safety Report 17437038 (Version 1)
Quarter: 2020Q1

REPORT INFORMATION
  Report Type: Spontaneous
  Country: CA (occurrence: CA)
  Receive Date: 20200219
  Receipt Date: 20200219
  Transmission Date: 20200409
  Serious: Yes (Death, Life-Threatening)
  Sender: FDA-Public Use
  Company Number: CA-TEVA-2020-CA-1185303

PATIENT
  Age: 62 Year
  Sex: Male
  Weight: 65 kg

DRUGS (15)
  1. PANTOPRAZOLE [Concomitant]
     Active Substance: PANTOPRAZOLE
  2. RISEDRONATE SODIUM. [Concomitant]
     Active Substance: RISEDRONATE SODIUM
  3. ZOPICLONE [Concomitant]
     Active Substance: ZOPICLONE
  4. OXYCODONE HYDROCHLORIDE. [Concomitant]
     Active Substance: OXYCODONE HYDROCHLORIDE
  5. ROSUVASTATIN. [Concomitant]
     Active Substance: ROSUVASTATIN
  6. LEVOTHYROXINE. [Concomitant]
     Active Substance: LEVOTHYROXINE
  7. VITAMIN B12 [Concomitant]
     Active Substance: CYANOCOBALAMIN
  8. ACT GEMCITABINE 200MG/5.26ML, 1G/26.3ML,2G/52.6ML VIALS [Suspect]
     Active Substance: GEMCITABINE
     Indication: PANCREATIC CARCINOMA
     Route: 042
  9. DOMPERIDONE [Concomitant]
     Active Substance: DOMPERIDONE
  10. MONUROL [Concomitant]
     Active Substance: FOSFOMYCIN TROMETHAMINE
  11. PROCHLORPERAZINE. [Concomitant]
     Active Substance: PROCHLORPERAZINE
  12. GABAPENTIN. [Concomitant]
     Active Substance: GABAPENTIN
  13. MIRTAZAPINE. [Concomitant]
     Active Substance: MIRTAZAPINE
  14. OXYCODONE [Concomitant]
     Active Substance: OXYCODONE
  15. CLONAZEPAM. [Concomitant]
     Active Substance: CLONAZEPAM

REACTIONS (7)
  - Dyspnoea [Fatal]
  - Acute respiratory distress syndrome [Fatal]
  - Cerebrovascular accident [Fatal]
  - Lung disorder [Fatal]
  - Respiratory failure [Fatal]
  - Lung infiltration [Fatal]
  - Pulmonary oedema [Fatal]
